FAERS Safety Report 21964638 (Version 1)
Quarter: 2023Q1

REPORT INFORMATION
  Report Type: Spontaneous
  Country: US (occurrence: US)
  Receive Date: 20230207
  Receipt Date: 20230207
  Transmission Date: 20230418
  Serious: No
  Sender: FDA-Public Use
  Company Number: US-PURDUE PHARMA-USA-2022-0297024

PATIENT
  Sex: Female

DRUGS (1)
  1. BUPRENORPHINE [Suspect]
     Active Substance: BUPRENORPHINE
     Indication: Pain
     Dosage: 20 MICROGRAM, 1XWEEKLY
     Route: 062

REACTIONS (9)
  - Nervousness [Unknown]
  - Vomiting [Unknown]
  - Blood potassium decreased [Unknown]
  - Muscular weakness [Unknown]
  - Muscle spasms [Unknown]
  - Feeling abnormal [Unknown]
  - Product adhesion issue [Unknown]
  - Wrong technique in product usage process [Unknown]
  - Drug ineffective [Unknown]
